FAERS Safety Report 4326267-6 (Version None)
Quarter: 2004Q1

REPORT INFORMATION
  Report Type: 
  Country: None (occurrence: None)
  Receive Date: 20040324
  Receipt Date: 20040312
  Transmission Date: 20041129
  Serious: Yes (Hospitalization)
  Sender: FDA-Public Use
  Company Number: GBWYE647417MAR04

PATIENT
  Age: 59 Year
  Sex: Female

DRUGS (7)
  1. LEDERMYCIN (DEMECLOCYLINE) [Suspect]
     Indication: HYPONATRAEMIA
  2. SIMVASTATIN (SIMVASTATIN, , 0) [Suspect]
  3. VALPROATE SODIUM [Concomitant]
  4. ATENOLOL [Concomitant]
  5. ASPIRIN [Concomitant]
  6. PHENYTOIN [Concomitant]
  7. LAMOTRIGINE [Concomitant]

REACTIONS (1)
  - STEVENS-JOHNSON SYNDROME [None]
